FAERS Safety Report 19772409 (Version 3)
Quarter: 2021Q3

REPORT INFORMATION
  Report Type: Spontaneous
  Country: MX (occurrence: MX)
  Receive Date: 20210831
  Receipt Date: 20210902
  Transmission Date: 20211014
  Serious: Yes (Hospitalization)
  Sender: FDA-Public Use
  Company Number: MX-LUNDBECK-DKLU3037210

PATIENT
  Age: 2 Year
  Sex: Female
  Weight: 16 kg

DRUGS (3)
  1. FRISIUM [Suspect]
     Active Substance: CLOBAZAM
     Indication: OFF LABEL USE
  2. FRISIUM [Suspect]
     Active Substance: CLOBAZAM
     Indication: INFANTILE SPASMS
     Route: 048
     Dates: start: 202005
  3. CLONAZEPAM. [Suspect]
     Active Substance: CLONAZEPAM
     Indication: PRODUCT USED FOR UNKNOWN INDICATION
     Route: 065

REACTIONS (5)
  - Pneumonia [Unknown]
  - Infection [Unknown]
  - Secretion discharge [Unknown]
  - Muscle spasms [Unknown]
  - Product use issue [Unknown]

NARRATIVE: CASE EVENT DATE: 20210824
